FAERS Safety Report 14244793 (Version 11)
Quarter: 2021Q2

REPORT INFORMATION
  Report Type: Report from Study
  Country: FR (occurrence: FR)
  Receive Date: 20171201
  Receipt Date: 20210427
  Transmission Date: 20210716
  Serious: Yes (Death, Hospitalization, Other)
  Sender: FDA-Public Use
  Company Number: FR-BRISTOL-MYERS SQUIBB COMPANY-BMS-2017-096658

PATIENT
  Age: 79 Year
  Sex: Female
  Weight: 55 kg

DRUGS (2)
  1. NIVOLUMAB [Suspect]
     Active Substance: NIVOLUMAB
     Indication: LUNG NEOPLASM MALIGNANT
     Dosage: 150 MG, Q2WK
     Route: 042
     Dates: start: 20170926, end: 20171010
  2. LAROXYL [Concomitant]
     Active Substance: AMITRIPTYLINE HYDROCHLORIDE
     Indication: CONFUSIONAL STATE
     Route: 065

REACTIONS (5)
  - Malignant neoplasm progression [Fatal]
  - Iron deficiency anaemia [Not Recovered/Not Resolved]
  - Pyrexia [Unknown]
  - Cervicobrachial syndrome [Fatal]
  - Inflammation [Unknown]

NARRATIVE: CASE EVENT DATE: 20171010
